FAERS Safety Report 21055765 (Version 2)
Quarter: 2022Q4

REPORT INFORMATION
  Report Type: Spontaneous
  Country: DE (occurrence: DE)
  Receive Date: 20220708
  Receipt Date: 20221208
  Transmission Date: 20230112
  Serious: Yes (Life-Threatening, Hospitalization, Other)
  Sender: FDA-Public Use
  Company Number: DE-DCGMA-22198379

PATIENT
  Age: 67 Year
  Sex: Female
  Weight: 68 kg

DRUGS (6)
  1. CETIRIZINE HYDROCHLORIDE [Suspect]
     Active Substance: CETIRIZINE HYDROCHLORIDE
     Indication: Rhinitis allergic
     Dosage: DAILY DOSE: 10 MG MILLGRAM(S) EVERY DAYS
     Route: 048
  2. CINNARIZINE\DIMENHYDRINATE [Suspect]
     Active Substance: CINNARIZINE\DIMENHYDRINATE
     Indication: Dizziness
     Dosage: 20/40 MG
     Route: 048
  3. QUININE SULFATE [Suspect]
     Active Substance: QUININE SULFATE
     Indication: Muscle spasms
     Dosage: DAILY DOSE: 200 MG MILLGRAM(S) EVERY AS NECESSARY
     Route: 048
  4. BUDESONIDE [Concomitant]
     Active Substance: BUDESONIDE
     Indication: Asthma
     Dosage: TWO PUFFS TWICE PER DAY, INHALATION USE
     Route: 065
  5. FORMOTEROL FUMARATE [Concomitant]
     Active Substance: FORMOTEROL FUMARATE
     Indication: Product used for unknown indication
     Dosage: FORMATRIS 6 MICROGRAMM NOVOLIZER, POWDER FOR INHALATION
     Route: 065
  6. FORMOTEROL FUMARATE [Concomitant]
     Active Substance: FORMOTEROL FUMARATE
     Indication: Asthma
     Dosage: ONE PUFF TWICE PER DAY, INHALATION USE
     Route: 065

REACTIONS (1)
  - Myelosuppression [Not Recovered/Not Resolved]

NARRATIVE: CASE EVENT DATE: 20220512
